FAERS Safety Report 4719605-3 (Version None)
Quarter: 2005Q3

REPORT INFORMATION
  Report Type: 
  Country: None (occurrence: None)
  Receive Date: 20050721
  Receipt Date: 20040413
  Transmission Date: 20060218
  Serious: Yes (Other)
  Sender: FDA-Public Use
  Company Number: US-GLAXOSMITHKLINE-A0508212A

PATIENT
  Sex: Male
  Weight: 102.3 kg

DRUGS (8)
  1. AVANDIA [Suspect]
     Route: 048
  2. AMARYL [Concomitant]
     Dosage: 4MG PER DAY
     Route: 048
  3. LANOXIN [Concomitant]
     Dosage: .25MG PER DAY
     Route: 048
  4. IMDUR [Concomitant]
  5. LOTREL [Concomitant]
  6. LASIX [Concomitant]
  7. CATAPRES [Concomitant]
  8. ATENOLOL [Concomitant]

REACTIONS (1)
  - CARDIAC FAILURE CONGESTIVE [None]
